FAERS Safety Report 4531403-2 (Version None)
Quarter: 2004Q4

REPORT INFORMATION
  Report Type: 
  Country: None (occurrence: None)
  Receive Date: 20041216
  Receipt Date: 20041129
  Transmission Date: 20050328
  Serious: Yes (Hospitalization)
  Sender: FDA-Public Use
  Company Number: USA031049833

PATIENT
  Age: 37 Year
  Sex: Female
  Weight: 73 kg

DRUGS (7)
  1. STRATTERA [Suspect]
     Indication: ATTENTION DEFICIT/HYPERACTIVITY DISORDER
     Dosage: 25 MG DAY
     Dates: start: 20031013, end: 20031014
  2. DEPAKOTE [Concomitant]
  3. PROPRANOLOL [Concomitant]
  4. HYOSCYAMINE [Concomitant]
  5. LORAZEPAM [Concomitant]
  6. LAMICTAL [Concomitant]
  7. VICODIN [Concomitant]

REACTIONS (5)
  - BLOOD GLUCOSE DECREASED [None]
  - BLOOD PRESSURE DECREASED [None]
  - LOSS OF CONSCIOUSNESS [None]
  - SELF-MEDICATION [None]
  - SLEEP APNOEA SYNDROME [None]
